FAERS Safety Report 9384003 (Version 2)
Quarter: 2013Q3

REPORT INFORMATION
  Report Type: Spontaneous
  Country: US (occurrence: US)
  Receive Date: 20130705
  Receipt Date: 20130808
  Transmission Date: 20140515
  Serious: Yes (Other)
  Sender: FDA-Public Use
  Company Number: US-009507513-1307USA002127

PATIENT
  Sex: Male

DRUGS (1)
  1. ZOLINZA [Suspect]
     Indication: MENINGIOMA
     Route: 048

REACTIONS (1)
  - Brain tumour operation [Unknown]
